FAERS Safety Report 7368890-0 (Version None)
Quarter: 2011Q1

REPORT INFORMATION
  Report Type: 
  Country: None (occurrence: None)
  Receive Date: 20110307
  Receipt Date: 20110228
  Transmission Date: 20110831
  Serious: Yes (Hospitalization)
  Sender: FDA-Public Use
  Company Number: 2010SP009187

PATIENT
  Age: 22 Year
  Sex: Female
  Weight: 108.8633 kg

DRUGS (6)
  1. NUVARING [Suspect]
     Indication: CONTRACEPTION
     Dosage: 1 DF;Q3W;VAG
     Route: 067
     Dates: start: 20080715, end: 20090701
  2. GAVISCON [Concomitant]
  3. AZITHROMYCIN [Concomitant]
  4. FLUCONAZOLE [Concomitant]
  5. CLOBETASOL PROPIONATE [Concomitant]
  6. KETOROLAC [Concomitant]

REACTIONS (39)
  - VIRAL UPPER RESPIRATORY TRACT INFECTION [None]
  - BACK PAIN [None]
  - POSTICTAL STATE [None]
  - UPPER-AIRWAY COUGH SYNDROME [None]
  - TRICUSPID VALVE INCOMPETENCE [None]
  - SINUSITIS [None]
  - TOOTH INFECTION [None]
  - MUSCULOSKELETAL STIFFNESS [None]
  - PRODUCTIVE COUGH [None]
  - CHLAMYDIAL INFECTION [None]
  - DYSPAREUNIA [None]
  - FALL [None]
  - PREGNANCY [None]
  - PHARYNGITIS STREPTOCOCCAL [None]
  - PAIN [None]
  - BLOOD PRESSURE SYSTOLIC INCREASED [None]
  - SPUTUM DISCOLOURED [None]
  - STRESS [None]
  - CEREBRAL THROMBOSIS [None]
  - URINARY TRACT INFECTION [None]
  - GRAND MAL CONVULSION [None]
  - MITRAL VALVE INCOMPETENCE [None]
  - VULVOVAGINAL MYCOTIC INFECTION [None]
  - CEREBRAL HAEMORRHAGE [None]
  - CANDIDIASIS [None]
  - CONDITION AGGRAVATED [None]
  - DRUG INEFFECTIVE [None]
  - PROTEIN S DECREASED [None]
  - CONVULSION [None]
  - NASOPHARYNGITIS [None]
  - DEPRESSION [None]
  - TENSION HEADACHE [None]
  - MIGRAINE [None]
  - VAGINITIS BACTERIAL [None]
  - ANXIETY [None]
  - INTERVERTEBRAL DISC PROTRUSION [None]
  - RHINITIS ALLERGIC [None]
  - GESTATIONAL DIABETES [None]
  - PATELLOFEMORAL PAIN SYNDROME [None]
